FAERS Safety Report 13051647 (Version 1)
Quarter: 2016Q4

REPORT INFORMATION
  Report Type: Spontaneous
  Country: FR (occurrence: FR)
  Receive Date: 20161221
  Receipt Date: 20161221
  Transmission Date: 20170207
  Serious: Yes (Death, Other)
  Sender: FDA-Public Use
  Company Number: FR-PFIZER INC-2016585831

PATIENT
  Age: 60 Year
  Sex: Female

DRUGS (9)
  1. NAFTIDROFURYL [Suspect]
     Active Substance: NAFRONYL
     Dosage: UNK
     Route: 048
     Dates: end: 20161205
  2. METFORMIN HCL [Suspect]
     Active Substance: METFORMIN HYDROCHLORIDE
     Indication: TYPE 2 DIABETES MELLITUS
     Dosage: 1 DF, 3X/DAY
     Route: 048
     Dates: end: 20161205
  3. ESOMEPRAZOLE [Suspect]
     Active Substance: ESOMEPRAZOLE
     Dosage: UNK
     Route: 048
     Dates: end: 20161205
  4. LYRICA [Suspect]
     Active Substance: PREGABALIN
     Indication: FIBROMYALGIA
     Dosage: 250 MG, 1X/DAY
     Route: 048
     Dates: end: 20161205
  5. SPIFEN [Suspect]
     Active Substance: IBUPROFEN
     Indication: FIBROMYALGIA
     Route: 048
  6. ONGLYZA [Suspect]
     Active Substance: SAXAGLIPTIN HYDROCHLORIDE
     Indication: TYPE 2 DIABETES MELLITUS
     Dosage: 1 DF, 1X/DAY
     Route: 048
     Dates: end: 20161205
  7. TOCO [Suspect]
     Active Substance: UNSPECIFIED INGREDIENT
     Dosage: 500 MG, 1X/DAY
     Route: 048
     Dates: end: 20161205
  8. SPIRONOLACTONE. [Suspect]
     Active Substance: SPIRONOLACTONE
     Indication: HYPERTENSION
     Dosage: 1 DF, 1X/DAY
     Route: 048
     Dates: end: 20161205
  9. TRAMADOL HYDROCHLORIDE. [Suspect]
     Active Substance: TRAMADOL HYDROCHLORIDE
     Indication: FIBROMYALGIA
     Dosage: 150 MG, 1X/DAY
     Route: 048
     Dates: end: 20161205

REACTIONS (8)
  - Sepsis [Unknown]
  - Cardio-respiratory arrest [Fatal]
  - Acute kidney injury [Fatal]
  - Central nervous system lesion [Fatal]
  - Ischaemic hepatitis [Fatal]
  - Pneumonia [Unknown]
  - Colitis ischaemic [Fatal]
  - Lactic acidosis [Fatal]

NARRATIVE: CASE EVENT DATE: 201612
